FAERS Safety Report 5196387-5 (Version None)
Quarter: 2006Q4

REPORT INFORMATION
  Report Type: 
  Country: None (occurrence: None)
  Receive Date: 20061222
  Receipt Date: 20061211
  Transmission Date: 20070319
  Serious: Yes (Hospitalization)
  Sender: FDA-Public Use
  Company Number: MEDI-0005121

PATIENT
  Age: 20 Month

DRUGS (4)
  1. SYNAGIS [Suspect]
     Indication: ANTIVIRAL PROPHYLAXIS
     Dosage: 100 MG; INTRAMUSCULAR
     Route: 030
     Dates: start: 20051028, end: 20060301
  2. SYNAGIS [Suspect]
     Indication: ANTIVIRAL PROPHYLAXIS
     Dosage: 100 MG; INTRAMUSCULAR
     Route: 030
     Dates: start: 20051028
  3. SYNAGIS [Suspect]
     Indication: ANTIVIRAL PROPHYLAXIS
     Dosage: 100 MG; INTRAMUSCULAR
     Route: 030
     Dates: start: 20051130
  4. SYNAGIS [Suspect]
     Indication: ANTIVIRAL PROPHYLAXIS
     Dosage: 100 MG; INTRAMUSCULAR
     Route: 030
     Dates: start: 20060118

REACTIONS (1)
  - MALAISE [None]
